FAERS Safety Report 5118934-1 (Version None)
Quarter: 2006Q3

REPORT INFORMATION
  Report Type: 
  Country: None (occurrence: None)
  Receive Date: 20060927
  Receipt Date: 20060919
  Transmission Date: 20061208
  Serious: Yes (Hospitalization, Disabling)
  Sender: FDA-Public Use
  Company Number: 163-21880-06090781

PATIENT
  Sex: Female

DRUGS (1)
  1. REVLIMID [Suspect]
     Indication: MULTIPLE MYELOMA
     Dosage: 10 MG, DAILY, ORAL
     Route: 048
     Dates: start: 20060807

REACTIONS (4)
  - ABASIA [None]
  - ARTHRALGIA [None]
  - MALAISE [None]
  - MUSCULOSKELETAL PAIN [None]
